FAERS Safety Report 5816720-8 (Version None)
Quarter: 2008Q3

REPORT INFORMATION
  Report Type: 
  Country: None (occurrence: None)
  Receive Date: 20080721
  Receipt Date: 20080711
  Transmission Date: 20090109
  Serious: Yes (Disabling, Other)
  Sender: FDA-Public Use
  Company Number: US-PFIZER INC-2008058159

PATIENT
  Sex: Female
  Weight: 84 kg

DRUGS (7)
  1. NORVASC [Suspect]
     Indication: HYPERTENSION
  2. COZAAR [Suspect]
     Indication: HYPERTENSION
  3. ASPIRIN [Concomitant]
  4. POTASSIUM CHLORIDE [Concomitant]
  5. CRESTOR [Concomitant]
  6. INDAPAMIDE [Concomitant]
  7. DRUG, UNSPECIFIED [Concomitant]

REACTIONS (11)
  - ASTHENIA [None]
  - BLOOD GLUCOSE ABNORMAL [None]
  - CHEST PAIN [None]
  - DYSPEPSIA [None]
  - DYSPNOEA [None]
  - HYPERHIDROSIS [None]
  - HYPERTENSION [None]
  - MIGRAINE [None]
  - POLLAKIURIA [None]
  - RENAL PAIN [None]
  - WEIGHT INCREASED [None]
